FAERS Safety Report 21017210 (Version 1)
Quarter: 2022Q2

REPORT INFORMATION
  Report Type: Spontaneous
  Country: US (occurrence: None)
  Receive Date: 20220627
  Receipt Date: 20220627
  Transmission Date: 20220721
  Serious: No
  Sender: FDA-Public Use
  Company Number: None

PATIENT
  Age: 33 Year
  Sex: Female
  Weight: 65.77 kg

DRUGS (4)
  1. COPPER [Suspect]
     Active Substance: COPPER
  2. UNSPECIFIED INGREDIENT [Suspect]
     Active Substance: UNSPECIFIED INGREDIENT
  3. IRON [Concomitant]
     Active Substance: IRON
  4. b vitamin [Concomitant]

REACTIONS (13)
  - Device breakage [None]
  - Device expulsion [None]
  - Complication associated with device [None]
  - Hypoaesthesia [None]
  - Fatigue [None]
  - Nausea [None]
  - Asthenia [None]
  - Dizziness [None]
  - Crying [None]
  - Pelvic pain [None]
  - Feeling cold [None]
  - Arthralgia [None]
  - Pain in extremity [None]
